FAERS Safety Report 10369489 (Version 1)
Quarter: 2014Q1

REPORT INFORMATION
  Report Type: Spontaneous
  Country: US (occurrence: None)
  Receive Date: 20140306
  Receipt Date: 20140306
  Transmission Date: 20141002
  Serious: Yes (Hospitalization)
  Sender: FDA-Public Use
  Company Number: 163-21880-13090347

PATIENT
  Age: 84 Year
  Sex: Male

DRUGS (11)
  1. REVLIMID (LENALIDOMIDE) (5 MILLIGRAM, CAPSULES) [Suspect]
     Indication: PLASMA CELL MYELOMA
     Dosage: 5 MG, 21 IN 21 D, PO
     Route: 048
     Dates: start: 20130808, end: 201308
  2. ZINC (UNKNOWN) [Concomitant]
  3. MAGNESIUM (UNKNOWN) [Concomitant]
  4. CINNAMON (CINNAMOMUM VERUM) (UNKNOWN) [Concomitant]
  5. ASPIRIN (ACETYLSALICYLIC ACID) (UNKNOWN) (ACETYLSALICYLIC ACID) [Concomitant]
  6. AVODART (DUTASTERIDE) (UNKNOWN) [Concomitant]
  7. CARVEDILOL (UNKNOWN) [Concomitant]
  8. COLACE (DOCUSATE SODIUM) (UNKNOWN) [Concomitant]
  9. FISH OIL (UNKNOWN) [Concomitant]
  10. FLUCONAZOLE (UNKNOWN) [Concomitant]
  11. GLIPIZIDE (UNKNOWN) [Concomitant]

REACTIONS (2)
  - Diarrhoea [None]
  - Dehydration [None]
